FAERS Safety Report 4961175-9 (Version None)
Quarter: 2006Q1

REPORT INFORMATION
  Report Type: 
  Country: None (occurrence: None)
  Receive Date: 20060201
  Receipt Date: 20051101
  Transmission Date: 20060701
  Serious: No
  Sender: FDA-Public Use
  Company Number: 2005PV003794

PATIENT
  Age: 54 Year
  Sex: Male

DRUGS (4)
  1. BYETTA [Suspect]
     Indication: DIABETES MELLITUS NON-INSULIN-DEPENDENT
     Dosage: 5 MCG;BID;SC
     Route: 058
     Dates: start: 20051024
  2. BENICAR HCT [Concomitant]
  3. GLUCOPHAGE XR [Concomitant]
  4. ACTOS [Concomitant]

REACTIONS (3)
  - DYSGEUSIA [None]
  - EARLY SATIETY [None]
  - MICTURITION FREQUENCY DECREASED [None]
